FAERS Safety Report 21000437 (Version 1)
Quarter: 2022Q2

REPORT INFORMATION
  Report Type: Spontaneous
  Country: US (occurrence: US)
  Receive Date: 20220623
  Receipt Date: 20220623
  Transmission Date: 20220720
  Serious: No
  Sender: FDA-Public Use
  Company Number: US-009507513-2205USA007481

PATIENT
  Age: 59 Year
  Sex: Female

DRUGS (4)
  1. TEMODAR [Suspect]
     Active Substance: TEMOZOLOMIDE
     Indication: Gastric neoplasm
     Dosage: 400 MILLIGRAM ON DAYS 10-14
     Route: 048
  2. TEMODAR [Suspect]
     Active Substance: TEMOZOLOMIDE
     Indication: Metastatic gastric cancer
  3. CAPECITABINE [Concomitant]
     Active Substance: CAPECITABINE
     Indication: Gastric neoplasm
     Dosage: 1000 MILLIGRAM, BID, FROM DAYS 1-14
  4. CAPECITABINE [Concomitant]
     Active Substance: CAPECITABINE
     Indication: Metastatic gastric cancer

REACTIONS (1)
  - Gastric neoplasm [Unknown]
